FAERS Safety Report 23369818 (Version 3)
Quarter: 2024Q3

REPORT INFORMATION
  Report Type: Report from Study
  Country: FR (occurrence: None)
  Receive Date: 20240105
  Receipt Date: 20240905
  Transmission Date: 20241016
  Serious: Yes (Other)
  Sender: ASTRAZENECA
  Company Number: 2024A001812

PATIENT
  Sex: Male
  Weight: 96 kg

DRUGS (1)
  1. IMFINZI [Suspect]
     Active Substance: DURVALUMAB
     Indication: HER2 positive biliary tract cancer
     Dosage: 1500.0MG ONCE/SINGLE ADMINISTRATION
     Route: 042
     Dates: start: 20231115, end: 20231115

REACTIONS (3)
  - Hepatic cytolysis [Unknown]
  - Cholestasis [Unknown]
  - Off label use [Unknown]
